FAERS Safety Report 14823514 (Version 1)
Quarter: 2018Q2

REPORT INFORMATION
  Report Type: Spontaneous
  Country: DE (occurrence: DE)
  Receive Date: 20180428
  Receipt Date: 20180428
  Transmission Date: 20180711
  Serious: Yes (Death, Hospitalization)
  Sender: FDA-Public Use
  Company Number: DE-ROCHE-2095592

PATIENT
  Age: 54 Year
  Sex: Female
  Weight: 66 kg

DRUGS (16)
  1. 5-FLUOROURACIL [Concomitant]
     Active Substance: FLUOROURACIL
     Dosage: 48H PUMP
     Route: 040
     Dates: start: 20180302, end: 20180302
  2. CIPRALEX [Concomitant]
     Active Substance: ESCITALOPRAM OXALATE
     Indication: DEPRESSION
     Route: 048
     Dates: end: 20180321
  3. METRONIDAZOL [Concomitant]
     Active Substance: METRONIDAZOLE
     Route: 065
     Dates: start: 20180316, end: 20180321
  4. ZOFRAN [Concomitant]
     Active Substance: ONDANSETRON HYDROCHLORIDE
     Route: 065
     Dates: start: 20180313, end: 20180316
  5. VERGENTAN [Concomitant]
     Active Substance: ALIZAPRIDE HYDROCHLORIDE
     Indication: PROPHYLAXIS OF NAUSEA AND VOMITING
     Route: 048
     Dates: end: 20180312
  6. IRINOTECAN [Concomitant]
     Active Substance: IRINOTECAN
     Route: 042
     Dates: start: 20180302, end: 20180302
  7. 5-FLUOROURACIL [Concomitant]
     Active Substance: FLUOROURACIL
     Route: 041
     Dates: start: 20180302, end: 20180302
  8. CEFTRIAXON [Concomitant]
     Active Substance: CEFTRIAXONE
     Route: 042
     Dates: start: 20180312, end: 20180315
  9. NOVAMINSULFON [Concomitant]
     Active Substance: METAMIZOLE
     Dosage: 6 TIMES 1 G
     Route: 042
     Dates: start: 20180316, end: 20180321
  10. TRANEXAMIC ACID. [Concomitant]
     Active Substance: TRANEXAMIC ACID
     Route: 042
     Dates: start: 20180318, end: 20180320
  11. FOLINIC ACID [Concomitant]
     Active Substance: LEUCOVORIN
     Route: 042
     Dates: start: 20180302, end: 20180302
  12. TAZOBAC [Concomitant]
     Active Substance: PIPERACILLIN SODIUM\TAZOBACTAM SODIUM
     Route: 042
     Dates: start: 20180315, end: 20180321
  13. JONOSTERIL [Concomitant]
     Active Substance: CALCIUM ACETATE\MAGNESIUM ACETATE\POTASSIUM ACETATE\SODIUM ACETATE\SODIUM CHLORIDE
     Route: 042
     Dates: start: 20180311, end: 20180321
  14. ADENURIC [Concomitant]
     Active Substance: FEBUXOSTAT
     Route: 048
     Dates: end: 20180321
  15. CLEXANE [Concomitant]
     Active Substance: ENOXAPARIN SODIUM
     Route: 058
     Dates: start: 20180312, end: 20180321
  16. AVASTIN [Suspect]
     Active Substance: BEVACIZUMAB
     Indication: COLON CANCER METASTATIC
     Route: 042
     Dates: start: 20180302, end: 20180302

REACTIONS (4)
  - Gastrointestinal perforation [Fatal]
  - Fatigue [Unknown]
  - Renal failure [Unknown]
  - Vomiting [Unknown]

NARRATIVE: CASE EVENT DATE: 20180316
